FAERS Safety Report 5923668-7 (Version None)
Quarter: 2008Q4

REPORT INFORMATION
  Report Type: 
  Country: None (occurrence: None)
  Receive Date: 20081020
  Receipt Date: 20081010
  Transmission Date: 20090506
  Serious: Yes (Hospitalization, Disabling)
  Sender: FDA-Public Use
  Company Number: A0716231A

PATIENT
  Age: 54 Year
  Sex: Male
  Weight: 102.3 kg

DRUGS (10)
  1. AVANDIA [Suspect]
     Indication: DIABETES MELLITUS
     Dosage: 4MG PER DAY
     Route: 048
     Dates: start: 20000701, end: 20040501
  2. ACTOS [Concomitant]
  3. GLUCOPHAGE [Concomitant]
  4. METFORMIN HYDROCHLORIDE [Concomitant]
  5. GLUCOTROL [Concomitant]
  6. NORVASC [Concomitant]
  7. ATENOLOL [Concomitant]
  8. MICARDIS [Concomitant]
  9. ZETIA [Concomitant]
  10. LESCOL [Concomitant]

REACTIONS (3)
  - CARDIAC FAILURE CONGESTIVE [None]
  - CEREBROVASCULAR ACCIDENT [None]
  - MYOCARDIAL INFARCTION [None]
